FAERS Safety Report 22350536 (Version 5)
Quarter: 2024Q2

REPORT INFORMATION
  Report Type: Report from Study
  Country: US (occurrence: US)
  Receive Date: 20230522
  Receipt Date: 20240508
  Transmission Date: 20240716
  Serious: Yes (Other)
  Sender: FDA-Public Use
  Company Number: US-PFIZER INC-US-GBT-015220

PATIENT
  Age: 4 Week
  Sex: Female
  Weight: 3.2 kg

DRUGS (6)
  1. VOXELOTOR [Suspect]
     Active Substance: VOXELOTOR
     Indication: Sickle cell disease
     Dosage: 1000 MG, 1X/DAY
     Route: 064
     Dates: start: 20200901, end: 202108
  2. VITAMIN D3 [Concomitant]
     Active Substance: CHOLECALCIFEROL
     Indication: Sickle cell disease
     Dosage: 2000 IU, 1X/DAY
     Route: 064
     Dates: start: 20201014, end: 20210930
  3. ASMANEX [Concomitant]
     Active Substance: MOMETASONE FUROATE
     Indication: Asthma
     Dosage: 220 UG, 1X/DAY
     Route: 064
     Dates: start: 20201117, end: 20210930
  4. MINERALS\VITAMINS [Concomitant]
     Active Substance: MINERALS\VITAMINS
     Indication: Sickle cell disease
     Dosage: 27-800 MG, SINGLE
     Route: 064
     Dates: start: 20210901, end: 20210917
  5. FOLVITE [Concomitant]
     Active Substance: FOLIC ACID
     Indication: Sickle cell disease
     Dosage: 4 MG, 1X/DAY
     Route: 064
     Dates: start: 20210901, end: 20211001
  6. TOZINAMERAN [Concomitant]
     Active Substance: TOZINAMERAN
     Indication: Immunisation
     Dosage: UNK, SINGLE
     Route: 064
     Dates: start: 20210722, end: 20210722

REACTIONS (2)
  - Maternal exposure during pregnancy [Unknown]
  - Ventricular septal defect [Unknown]

NARRATIVE: CASE EVENT DATE: 20220501
